FAERS Safety Report 9495797 (Version 1)
Quarter: 2013Q3

REPORT INFORMATION
  Report Type: Report from Study
  Country: VE (occurrence: VE)
  Receive Date: 20130903
  Receipt Date: 20130903
  Transmission Date: 20140515
  Serious: Yes (Other)
  Sender: FDA-Public Use
  Company Number: VE-ABBOTT-13P-178-1139674-00

PATIENT
  Age: 37 Year
  Sex: Female
  Weight: 104 kg

DRUGS (1)
  1. HUMIRA [Suspect]
     Indication: ANKYLOSING SPONDYLITIS
     Route: 058
     Dates: start: 20130312, end: 20130615

REACTIONS (2)
  - Unintended pregnancy [Not Recovered/Not Resolved]
  - Abortion threatened [Not Recovered/Not Resolved]
